FAERS Safety Report 13219955 (Version 1)
Quarter: 2017Q1

REPORT INFORMATION
  Report Type: Spontaneous
  Country: US (occurrence: US)
  Receive Date: 20170210
  Receipt Date: 20170210
  Transmission Date: 20170428
  Serious: No
  Sender: FDA-Public Use
  Company Number: US-BAYER-2017-017500

PATIENT
  Age: 75 Year
  Sex: Female
  Weight: 81 kg

DRUGS (3)
  1. MIRALAX [Suspect]
     Active Substance: POLYETHYLENE GLYCOL 3350
     Indication: GASTROINTESTINAL MOTILITY DISORDER
     Dosage: 0.5 DF, BID
     Route: 048
     Dates: end: 20170127
  2. MIRAFIBER SUGAR FREE ORANGE POWDER [Suspect]
     Active Substance: METHYLCELLULOSES
     Indication: GASTROINTESTINAL MOTILITY DISORDER
     Dosage: 1 DF, UNK
     Route: 048
     Dates: end: 20170127
  3. MIRALAX [Suspect]
     Active Substance: POLYETHYLENE GLYCOL 3350
     Indication: GASTROINTESTINAL MOTILITY DISORDER
     Dosage: 1 DF, QD
     Route: 048

REACTIONS (6)
  - Product use issue [Unknown]
  - Product use issue [Unknown]
  - Retching [Recovered/Resolved]
  - Abdominal pain upper [Recovered/Resolved]
  - Wrong technique in product usage process [Unknown]
  - Product physical issue [None]

NARRATIVE: CASE EVENT DATE: 2016
